FAERS Safety Report 6614515-9 (Version None)
Quarter: 2010Q1

REPORT INFORMATION
  Report Type: 
  Country: None (occurrence: None)
  Receive Date: 20100304
  Receipt Date: 20100301
  Transmission Date: 20100710
  Serious: Yes (Hospitalization)
  Sender: FDA-Public Use
  Company Number: GB-MERCK-1003GBR00012

PATIENT
  Sex: Male

DRUGS (5)
  1. ZOCOR [Suspect]
     Route: 048
     Dates: start: 20080101, end: 20080101
  2. LISINOPRIL [Concomitant]
     Indication: BLOOD PRESSURE ABNORMAL
     Route: 065
  3. METFORMIN [Concomitant]
     Route: 065
  4. ASPIRIN [Concomitant]
     Route: 065
  5. STATIN (UNSPECIFIED) [Concomitant]
     Route: 065

REACTIONS (2)
  - MUSCLE SPASMS [None]
  - MUSCULOSKELETAL CHEST PAIN [None]
